FAERS Safety Report 6192836-4 (Version None)
Quarter: 2009Q2

REPORT INFORMATION
  Report Type: 
  Country: None (occurrence: None)
  Receive Date: 20090518
  Receipt Date: 20090505
  Transmission Date: 20091009
  Serious: Yes (Hospitalization)
  Sender: FDA-Public Use
  Company Number: GB-AVENTIS-200914777GDDC

PATIENT
  Age: 13 Year
  Sex: Male

DRUGS (3)
  1. LANTUS [Suspect]
     Route: 058
  2. AUTOPEN INSULIN INJECTION PEN [Suspect]
  3. NOVORAPID [Concomitant]
     Dosage: DOSE: 3 DOSES

REACTIONS (3)
  - MALAISE [None]
  - MEDICATION ERROR [None]
  - PRODUCT QUALITY ISSUE [None]
